FAERS Safety Report 25929640 (Version 1)
Quarter: 2025Q4

REPORT INFORMATION
  Report Type: Spontaneous
  Country: US (occurrence: US)
  Receive Date: 20251016
  Receipt Date: 20251016
  Transmission Date: 20260118
  Serious: No
  Sender: AMGEN
  Company Number: US-AMGEN-USASP2025202447

PATIENT
  Age: 54 Year
  Sex: Female

DRUGS (1)
  1. REPATHA [Suspect]
     Active Substance: EVOLOCUMAB
     Indication: Product used for unknown indication
     Dosage: UNK
     Route: 065
     Dates: start: 20250911, end: 20250913

REACTIONS (3)
  - Vulvovaginal discomfort [Unknown]
  - Vulvovaginal pruritus [Unknown]
  - Vulvovaginal erythema [Unknown]

NARRATIVE: CASE EVENT DATE: 20250901
